FAERS Safety Report 5541631-5 (Version None)
Quarter: 2007Q4

REPORT INFORMATION
  Report Type: 
  Country: None (occurrence: None)
  Receive Date: 20071210
  Receipt Date: 20071125
  Transmission Date: 20080405
  Serious: Yes (Other)
  Sender: FDA-Public Use
  Company Number: CH-AMGEN-UK252081

PATIENT
  Sex: Female
  Weight: 65 kg

DRUGS (3)
  1. KINERET [Suspect]
     Indication: POLYARTHRITIS
     Route: 058
     Dates: start: 20071001, end: 20071108
  2. INDERAL [Concomitant]
     Route: 048
  3. VOLTAREN [Concomitant]
     Route: 048
     Dates: start: 20040101

REACTIONS (4)
  - DERMATITIS ALLERGIC [None]
  - ERYTHEMA [None]
  - HYPERSENSITIVITY [None]
  - SWELLING [None]
